FAERS Safety Report 5612026-0 (Version None)
Quarter: 2008Q1

REPORT INFORMATION
  Report Type: 
  Country: None (occurrence: None)
  Receive Date: 20080204
  Receipt Date: 20080129
  Transmission Date: 20080703
  Serious: Yes (Death)
  Sender: FDA-Public Use
  Company Number: GB-BAYER-200710958BNE

PATIENT
  Age: 63 Year
  Sex: Male
  Weight: 69 kg

DRUGS (5)
  1. SORAFENIB [Suspect]
     Indication: RENAL CELL CARCINOMA
     Dosage: TOTAL DAILY DOSE: 1200 MG
     Route: 048
     Dates: start: 20070522, end: 20070904
  2. SORAFENIB [Suspect]
     Dosage: TOTAL DAILY DOSE: 800 MG
     Route: 048
     Dates: start: 20070405, end: 20070522
  3. DEXAMETHASONE TAB [Concomitant]
     Route: 048
     Dates: start: 20070323
  4. MST [Concomitant]
     Dosage: TOTAL DAILY DOSE: 60 MG
  5. AMITRIPTYLINE HCL [Concomitant]
     Route: 048
     Dates: start: 20070501

REACTIONS (2)
  - RENAL FAILURE ACUTE [None]
  - RENAL TUBULAR NECROSIS [None]
